FAERS Safety Report 5810137-8 (Version None)
Quarter: 2008Q3

REPORT INFORMATION
  Report Type: 
  Country: None (occurrence: None)
  Receive Date: 20080715
  Receipt Date: 20070720
  Transmission Date: 20090109
  Serious: No
  Sender: FDA-Public Use
  Company Number: A0665391A

PATIENT
  Age: 72 Year
  Sex: Female

DRUGS (6)
  1. IMITREX [Suspect]
     Indication: MIGRAINE
     Dosage: 500MG AS REQUIRED
     Route: 048
  2. TOPAMAX [Concomitant]
  3. NADOLOL [Concomitant]
  4. NORTRIPTYLINE HCL [Concomitant]
  5. UNKNOWN MEDICATION [Concomitant]
  6. CHLORDIAZEPOXIDE [Concomitant]

REACTIONS (1)
  - DRUG INEFFECTIVE [None]
